FAERS Safety Report 6226759-9 (Version None)
Quarter: 2009Q2

REPORT INFORMATION
  Report Type: 
  Country: None (occurrence: None)
  Receive Date: 20090612
  Receipt Date: 20090520
  Transmission Date: 20091009
  Serious: No
  Sender: FDA-Public Use
  Company Number: US-ABBOTT-09P-163-0574855-00

PATIENT
  Sex: Female
  Weight: 81.72 kg

DRUGS (7)
  1. HUMIRA [Suspect]
     Indication: RHEUMATOID ARTHRITIS
     Route: 058
     Dates: start: 20080101, end: 20080101
  2. HUMIRA [Suspect]
     Dates: start: 20081201
  3. HUMIRA [Suspect]
     Route: 058
     Dates: start: 20090301
  4. FUROSEMIDE [Concomitant]
     Indication: HYPERTENSION
  5. POTASSIUM CHLORIDE [Concomitant]
     Indication: ELECTROLYTE SUBSTITUTION THERAPY
  6. PREDNISONE [Concomitant]
     Indication: RHEUMATOID ARTHRITIS
  7. METHOTREXATE [Concomitant]
     Indication: RHEUMATOID ARTHRITIS

REACTIONS (9)
  - ARTHROPATHY [None]
  - DRUG DOSE OMISSION [None]
  - FEELING ABNORMAL [None]
  - HEAD INJURY [None]
  - JOINT SWELLING [None]
  - LIP SWELLING [None]
  - OEDEMA MOUTH [None]
  - SUTURE INSERTION [None]
  - SWOLLEN TONGUE [None]
